FAERS Safety Report 15744399 (Version 1)
Quarter: 2018Q4

REPORT INFORMATION
  Report Type: Spontaneous
  Country: US (occurrence: US)
  Receive Date: 20181220
  Receipt Date: 20181220
  Transmission Date: 20190205
  Serious: No
  Sender: FDA-Public Use
  Company Number: US-DRREDDYS-USA/USA/18/0105256

PATIENT

DRUGS (1)
  1. SUMATRIPTAN INJECTION USP, 6 MG/0.5 ML [Suspect]
     Active Substance: SUMATRIPTAN
     Indication: CLUSTER HEADACHE
     Dosage: 6 MILLIGRAM/ 0.5 MILLILITER

REACTIONS (2)
  - Product quality issue [Unknown]
  - Injection site laceration [Recovered/Resolved]

NARRATIVE: CASE EVENT DATE: 20181102
